FAERS Safety Report 13251141 (Version 1)
Quarter: 2017Q1

REPORT INFORMATION
  Report Type: Spontaneous
  Country: JP (occurrence: JP)
  Receive Date: 20170220
  Receipt Date: 20170220
  Transmission Date: 20170428
  Serious: Yes (Hospitalization)
  Sender: FDA-Public Use
  Company Number: JP-ACCORD-048477

PATIENT
  Age: 79 Year
  Sex: Female
  Weight: 43 kg

DRUGS (5)
  1. PERTUZUMAB [Concomitant]
     Active Substance: PERTUZUMAB
     Indication: METASTASES TO LUNG
     Dates: start: 201508
  2. DOCETAXEL. [Concomitant]
     Active Substance: DOCETAXEL
     Indication: METASTASES TO LUNG
     Dates: start: 201508
  3. LETROZOLE. [Suspect]
     Active Substance: LETROZOLE
     Indication: METASTASES TO LUNG
     Dates: start: 201511
  4. TRASTUZUMAB [Concomitant]
     Active Substance: TRASTUZUMAB
     Indication: METASTASES TO LUNG
     Dosage: ALSO RECEIVED TRASTUZUMAB EMTANSIN AS A SECONDARY
     Dates: start: 201508
  5. LAPATINIB/LAPATINIB DITOSYLATE [Suspect]
     Active Substance: LAPATINIB
     Indication: METASTASES TO LUNG
     Dates: start: 201511

REACTIONS (2)
  - Diarrhoea [Unknown]
  - Interstitial lung disease [Recovering/Resolving]
